FAERS Safety Report 9641852 (Version 1)
Quarter: 2013Q4

REPORT INFORMATION
  Report Type: Spontaneous
  Country: CA (occurrence: CA)
  Receive Date: 20131023
  Receipt Date: 20131023
  Transmission Date: 20140711
  Serious: Yes (Other)
  Sender: FDA-Public Use
  Company Number: CA-B.I. PHARMACEUTICALS,INC./RIDGEFIELD-2013-CN-01699CN

PATIENT
  Age: 82 Year
  Sex: Male

DRUGS (1)
  1. PRADAXA [Suspect]

REACTIONS (1)
  - Cerebellar ischaemia [Unknown]
